FAERS Safety Report 7973360-2 (Version None)
Quarter: 2011Q4

REPORT INFORMATION
  Report Type: 
  Country: None (occurrence: None)
  Receive Date: 20111213
  Receipt Date: 20110701
  Transmission Date: 20120403
  Serious: Yes (Other)
  Sender: FDA-Public Use
  Company Number: US-AMGEN-USASP2011033718

PATIENT
  Sex: Male

DRUGS (1)
  1. ARANESP [Suspect]
     Indication: ANAEMIA
     Dosage: 25 A?G, UNK
     Dates: start: 20110101

REACTIONS (3)
  - HAEMOGLOBIN DECREASED [None]
  - ASTHENIA [None]
  - FATIGUE [None]
